FAERS Safety Report 6411140-X (Version None)
Quarter: 2009Q4

REPORT INFORMATION
  Report Type: 
  Country: None (occurrence: None)
  Receive Date: 20091022
  Receipt Date: 20091016
  Transmission Date: 20100525
  Serious: Yes (Other)
  Sender: FDA-Public Use
  Company Number: FR-PFIZER INC-2009226205

PATIENT
  Age: 34 Year

DRUGS (29)
  1. AMLODIPINE BESYLATE [Suspect]
     Dosage: 5 MG, 1X/DAY
     Dates: start: 20080620, end: 20080916
  2. AMLODIPINE BESYLATE [Suspect]
     Dosage: 10 MG, 1X/DAY
     Route: 050
     Dates: start: 20080917, end: 20081215
  3. ATARAX [Suspect]
     Dosage: 25 MG, 1X/DAY
     Route: 050
     Dates: start: 20080818, end: 20081217
  4. PIVALONE [Suspect]
     Dosage: 2 GTT, 2X/DAY
     Route: 050
     Dates: start: 20081031, end: 20081107
  5. IMUREL [Suspect]
     Dosage: 1.5 DF, 2X/DAY
     Route: 050
     Dates: start: 20080613, end: 20080821
  6. IMUREL [Suspect]
     Dosage: 1 DF, 2X/DAY
     Route: 050
     Dates: start: 20080822, end: 20080905
  7. IMUREL [Suspect]
     Dosage: 0.5 DF, 1X/DAY
     Route: 050
     Dates: start: 20080906, end: 20080916
  8. NEORAL [Suspect]
     Dosage: 100 MG, 2X/DAY
     Route: 050
     Dates: end: 20081021
  9. NEORAL [Suspect]
     Dosage: 50 MG, 2X/DAY
     Route: 050
     Dates: start: 20081022, end: 20081105
  10. NEORAL [Suspect]
     Dosage: 25 MG, 2X/DAY
     Route: 050
     Dates: start: 20081106, end: 20081217
  11. RENAGEL [Suspect]
     Dosage: 800 MG, 3X/DAY
     Route: 050
     Dates: start: 20080828, end: 20081215
  12. KAYEXALATE [Suspect]
     Dosage: UNK
     Route: 050
     Dates: start: 20080613, end: 20080804
  13. KAYEXALATE [Suspect]
     Dosage: UNK
     Route: 050
     Dates: start: 20080805, end: 20081115
  14. MUCOMYST [Suspect]
     Dosage: 200 MG, 2X/DAY
     Route: 050
     Dates: start: 20081107, end: 20081110
  15. RHINOFLUIMUCIL [Suspect]
     Dosage: UNK
     Route: 050
     Dates: start: 20081107, end: 20081110
  16. ORELOX [Suspect]
     Dosage: 100 MG, 2X/DAY
     Route: 050
     Dates: start: 20081107, end: 20081117
  17. ISOTRETINOIN [Suspect]
     Dosage: UNK
     Route: 050
     Dates: start: 20080829, end: 20080916
  18. ERYTHROMYCIN [Suspect]
     Dosage: UNK
     Dates: start: 20080829, end: 20080916
  19. RUBOZINC [Suspect]
     Dosage: 15 MG, 1X/DAY
     Route: 050
     Dates: start: 20080829, end: 20080916
  20. LASILIX [Suspect]
     Dosage: 500 MG, 2X/DAY
     Route: 050
     Dates: start: 20080613, end: 20081215
  21. SPECIAFOLDINE [Suspect]
     Dosage: 5 MG, 2X/DAY
     Route: 050
     Dates: start: 20081008, end: 20081217
  22. UN-ALFA [Suspect]
     Dosage: 0.5 UG, 1X/DAY
     Route: 050
     Dates: start: 20080704, end: 20081017
  23. NEXIUM [Suspect]
     Dosage: 40 MG, 1X/DAY
     Route: 050
     Dates: start: 20080613, end: 20080821
  24. NEXIUM [Suspect]
     Dosage: 20 MG, 1X/DAY
     Route: 050
     Dates: start: 20080822, end: 20081217
  25. ARANESP [Suspect]
     Dosage: 60 UG, WEEKLY
     Dates: start: 20080827, end: 20080928
  26. ARANESP [Suspect]
     Dosage: 80 UG, UNK
     Dates: start: 20080929, end: 20081217
  27. VENOFER [Suspect]
     Dosage: 100 UG, TWICE X WEEK
     Dates: start: 20080613, end: 20081016
  28. VENOFER [Suspect]
     Dosage: 100 UG, TREE TIME X WEEK
     Dates: start: 20081017, end: 20081214
  29. VENOFER [Suspect]
     Dosage: 100 UG, TWICE X WEEK
     Dates: start: 20081215, end: 20081217

REACTIONS (1)
  - INTRA-UTERINE DEATH [None]
